FAERS Safety Report 8725471 (Version 2)
Quarter: 2012Q4

REPORT INFORMATION
  Report Type: 
  Country: US (occurrence: US)
  Receive Date: 20120815
  Receipt Date: 20120926
  Transmission Date: 20130627
  Serious: Yes (Hospitalization)
  Sender: FDA-Public Use
  Company Number: US-PFIZER INC-2012198571

PATIENT
  Age: 38 Year
  Sex: Male

DRUGS (7)
  1. EPIPEN [Suspect]
     Indication: ANAPHYLACTIC REACTION
     Dosage: 0.3 mg, single
     Route: 030
  2. SOLU-MEDROL [Concomitant]
     Indication: ANAPHYLACTIC REACTION
     Dosage: 125 mg, single
     Route: 042
  3. ZOFRAN [Concomitant]
     Indication: ANAPHYLACTIC REACTION
     Dosage: 4 mg, single
     Route: 042
  4. BENADRYL [Concomitant]
     Indication: ANAPHYLACTIC REACTION
     Dosage: 50 mg, single
     Route: 042
  5. ATIVAN [Concomitant]
     Indication: ANAPHYLACTIC REACTION
     Dosage: 1 mg, single
     Route: 042
  6. ZANTAC [Concomitant]
     Indication: ANAPHYLACTIC REACTION
     Dosage: 50 mg, single
     Route: 042
  7. COMBIVENT [Concomitant]
     Indication: ANAPHYLACTIC REACTION
     Dosage: Two nebuliser treatments
     Route: 055

REACTIONS (1)
  - Acute myocardial infarction [Recovered/Resolved]
